FAERS Safety Report 23244430 (Version 2)
Quarter: 2023Q4

REPORT INFORMATION
  Report Type: Other
  Country: CA (occurrence: None)
  Receive Date: 20231130
  Receipt Date: 20231208
  Transmission Date: 20240110
  Serious: No
  Sender: FDA-Public Use
  Company Number: CA-ROCHE-3467247

PATIENT
  Sex: Female

DRUGS (1)
  1. OCREVUS [Suspect]
     Active Substance: OCRELIZUMAB
     Indication: Relapsing-remitting multiple sclerosis
     Dosage: SHE RECEIVED DOSE OCRELIZUMAB OF 600 MG FOR EVERY 6 MONTH
     Route: 042
     Dates: start: 20190124

REACTIONS (2)
  - COVID-19 [Recovered/Resolved]
  - Ear pain [Unknown]
